FAERS Safety Report 8780446 (Version 1)
Quarter: 2012Q4

REPORT INFORMATION
  Report Type: Spontaneous
  Country: US (occurrence: None)
  Receive Date: 20120906
  Receipt Date: 20120906
  Transmission Date: 20130627
  Serious: No
  Sender: FDA-Public Use
  Company Number: None

PATIENT
  Age: 70 Year
  Sex: Female

DRUGS (1)
  1. NEXAVAR [Suspect]
     Indication: LIVER, CANCER OF
     Route: 048
     Dates: start: 20120828

REACTIONS (3)
  - Fatigue [None]
  - Fatigue [None]
  - Nausea [None]
